FAERS Safety Report 10064059 (Version 1)
Quarter: 2014Q2

REPORT INFORMATION
  Report Type: Spontaneous
  Country: US (occurrence: US)
  Receive Date: 20140408
  Receipt Date: 20140408
  Transmission Date: 20141212
  Serious: No
  Sender: FDA-Public Use
  Company Number: US-SHIRE-US201401132

PATIENT
  Age: 16 Year
  Sex: Male

DRUGS (2)
  1. LIALDA [Suspect]
     Indication: COLITIS ULCERATIVE
     Dosage: 2.4 G (2 TABLETS), 1X/DAY:QD
     Route: 048
     Dates: start: 2013, end: 2014
  2. LIALDA [Suspect]
     Dosage: 4.8 G (4 TABLETS), 1X/DAY:QD
     Route: 048
     Dates: start: 2014

REACTIONS (7)
  - Influenza [Unknown]
  - Colitis ulcerative [Unknown]
  - Haematochezia [Unknown]
  - Pyrexia [Unknown]
  - Dizziness [Unknown]
  - Diarrhoea [Unknown]
  - Off label use [Not Recovered/Not Resolved]
